FAERS Safety Report 22114489 (Version 1)
Quarter: 2023Q1

REPORT INFORMATION
  Report Type: Spontaneous
  Country: AU (occurrence: AU)
  Receive Date: 20230320
  Receipt Date: 20230320
  Transmission Date: 20230417
  Serious: Yes (Other)
  Sender: FDA-Public Use
  Company Number: AU-GLAXOSMITHKLINE-AU2023GSK040936

PATIENT

DRUGS (3)
  1. ZYBAN [Suspect]
     Active Substance: BUPROPION HYDROCHLORIDE
     Indication: Product used for unknown indication
     Dosage: UNK
  2. PALEXIA [Suspect]
     Active Substance: TAPENTADOL HYDROCHLORIDE
     Indication: Product used for unknown indication
     Dosage: UNK
  3. ESCITALOPRAM [Suspect]
     Active Substance: ESCITALOPRAM OXALATE
     Indication: Product used for unknown indication
     Dosage: UNK

REACTIONS (6)
  - Urinary retention [Unknown]
  - Hyperreflexia [Unknown]
  - Anxiety [Unknown]
  - Mydriasis [Unknown]
  - Myoclonus [Unknown]
  - Prescribed overdose [Unknown]
